FAERS Safety Report 10548503 (Version 1)
Quarter: 2014Q4

REPORT INFORMATION
  Report Type: Spontaneous
  Country: US (occurrence: None)
  Receive Date: 20141015
  Receipt Date: 20141015
  Transmission Date: 20150529
  Serious: Yes (Other)
  Sender: FDA-Public Use
  Company Number: 2014US003496

PATIENT
  Age: 26 Year
  Sex: Male

DRUGS (8)
  1. CLONAZEPAM (CLONAZEPAM) [Concomitant]
  2. DIPHENHYDRAMINE (DIPHENHYDRAMINE) [Concomitant]
     Active Substance: DIPHENHYDRAMINE
  3. ICLUSIG [Suspect]
     Active Substance: PONATINIB
     Indication: CHRONIC MYELOID LEUKAEMIA
     Route: 048
     Dates: start: 20140606
  4. FUROSEMIDE (FUROSEMIDE) [Concomitant]
     Active Substance: FUROSEMIDE
  5. KEPPRA [Concomitant]
     Active Substance: LEVETIRACETAM
  6. ZONISAMIDE (ZONISAMIDE) [Concomitant]
  7. XANAX [Concomitant]
     Active Substance: ALPRAZOLAM
  8. CETIRIZINE [Concomitant]
     Active Substance: CETIRIZINE HYDROCHLORIDE

REACTIONS (2)
  - Bone marrow transplant [None]
  - Arthralgia [None]
